FAERS Safety Report 20387385 (Version 2)
Quarter: 2022Q1

REPORT INFORMATION
  Report Type: Spontaneous
  Country: US (occurrence: US)
  Receive Date: 20220127
  Receipt Date: 20220225
  Transmission Date: 20220423
  Serious: No
  Sender: FDA-Public Use
  Company Number: US-BoehringerIngelheim-2022-BI-150665

PATIENT
  Age: 66 Year
  Sex: Female

DRUGS (1)
  1. OFEV [Suspect]
     Active Substance: NINTEDANIB
     Indication: Idiopathic pulmonary fibrosis
     Dates: start: 20220125

REACTIONS (6)
  - Diarrhoea [Not Recovered/Not Resolved]
  - Nausea [Unknown]
  - Flatulence [Unknown]
  - Dyspnoea [Unknown]
  - Fatigue [Unknown]
  - Vomiting [Recovered/Resolved]

NARRATIVE: CASE EVENT DATE: 20220125
